FAERS Safety Report 8361967-2 (Version None)
Quarter: 2012Q2

REPORT INFORMATION
  Report Type: 
  Country: None (occurrence: None)
  Receive Date: 20120515
  Receipt Date: 20120507
  Transmission Date: 20120825
  Serious: Yes (Hospitalization)
  Sender: FDA-Public Use
  Company Number: US-ACTELION-A-NJ2012-62864

PATIENT

DRUGS (2)
  1. TRACLEER [Suspect]
     Indication: PULMONARY ARTERIAL HYPERTENSION
     Dosage: UNK
     Route: 048
     Dates: start: 20120317
  2. REVATIO [Concomitant]

REACTIONS (4)
  - PULMONARY OEDEMA [None]
  - OEDEMA PERIPHERAL [None]
  - DYSPNOEA [None]
  - RIGHT VENTRICULAR FAILURE [None]
